FAERS Safety Report 8104271-X (Version None)
Quarter: 2012Q1

REPORT INFORMATION
  Report Type: 
  Country: None (occurrence: None)
  Receive Date: 20120130
  Receipt Date: 20120125
  Transmission Date: 20120608
  Serious: No
  Sender: FDA-Public Use
  Company Number: US-BAYER-2012-008854

PATIENT
  Sex: Female
  Weight: 63 kg

DRUGS (5)
  1. MAGNESIUM [Concomitant]
  2. MULTI-VITAMIN [Concomitant]
  3. VITAMIN D [Concomitant]
  4. NAPROXEN (ALEVE) [Suspect]
     Dosage: UNK
     Dates: start: 20110101
  5. CALCIUM [Concomitant]

REACTIONS (1)
  - PAIN [None]
